FAERS Safety Report 10236968 (Version 1)
Quarter: 2014Q2

REPORT INFORMATION
  Report Type: Spontaneous
  Country: US (occurrence: US)
  Receive Date: 20140613
  Receipt Date: 20140613
  Transmission Date: 20141212
  Serious: No
  Sender: FDA-Public Use
  Company Number: US-PFIZER INC-2014158616

PATIENT
  Sex: Female

DRUGS (3)
  1. ADVIL [Suspect]
     Indication: PAIN
     Dosage: UNK
  2. ADVIL [Suspect]
     Dosage: 3 CAPSULES, 3X/DAY
     Dates: start: 20140607
  3. ADVIL [Suspect]
     Dosage: 4 CAPSULES, 3X/DAY
     Dates: start: 20140608

REACTIONS (2)
  - Overdose [Unknown]
  - Joint swelling [Unknown]
